FAERS Safety Report 13531338 (Version 1)
Quarter: 2017Q2

REPORT INFORMATION
  Report Type: Spontaneous
  Country: US (occurrence: US)
  Receive Date: 20170510
  Receipt Date: 20170510
  Transmission Date: 20170830
  Serious: Yes (Disabling)
  Sender: FDA-Public Use
  Company Number: None

PATIENT

DRUGS (1)
  1. ARIPIPRAZOLE. [Suspect]
     Active Substance: ARIPIPRAZOLE
     Indication: SCHIZOAFFECTIVE DISORDER
     Route: 048
     Dates: start: 20170419, end: 20170426

REACTIONS (6)
  - Feeling abnormal [None]
  - Ageusia [None]
  - Hypoaesthesia [None]
  - Product substitution issue [None]
  - Throat tightness [None]
  - Restlessness [None]

NARRATIVE: CASE EVENT DATE: 20170419
